FAERS Safety Report 7671816-3 (Version None)
Quarter: 2011Q3

REPORT INFORMATION
  Report Type: 
  Country: None (occurrence: None)
  Receive Date: 20110809
  Receipt Date: 20110804
  Transmission Date: 20111222
  Serious: Yes (Other)
  Sender: FDA-Public Use
  Company Number: GB-ABBOTT-11P-167-0843941-00

PATIENT
  Sex: Female

DRUGS (2)
  1. HUMIRA [Suspect]
     Indication: SERONEGATIVE ARTHRITIS
     Route: 058
     Dates: start: 20100622
  2. AZULFIDINE [Concomitant]
     Indication: SERONEGATIVE ARTHRITIS

REACTIONS (3)
  - COLITIS ULCERATIVE [None]
  - COLON CANCER METASTATIC [None]
  - GASTROINTESTINAL CARCINOMA [None]
